FAERS Safety Report 8956004 (Version 1)
Quarter: 2012Q4

REPORT INFORMATION
  Report Type: 
  Country: AU (occurrence: AU)
  Receive Date: 20121210
  Receipt Date: 20121210
  Transmission Date: 20130627
  Serious: Yes (Other)
  Sender: FDA-Public Use
  Company Number: AU-ASTRAZENECA-2012SE90132

PATIENT
  Age: 50 Year
  Sex: Female

DRUGS (4)
  1. PULMICORT [Suspect]
     Indication: ASTHMA
     Dosage: TWO PUFFS IN THE MORNING AND TWO PUFFS AT NIGHT
     Route: 055
     Dates: start: 201205
  2. SYMBICORT [Suspect]
     Indication: ASTHMA
     Dosage: UNKNOWN STRENGTH AND FREQUENCY
     Route: 055
     Dates: end: 201205
  3. VENTOLIN [Concomitant]
  4. ROSE HIP [Concomitant]
     Indication: MUSCULOSKELETAL PAIN

REACTIONS (6)
  - Abdominal pain [Not Recovered/Not Resolved]
  - Abdominal distension [Not Recovered/Not Resolved]
  - Dizziness [Unknown]
  - Palpitations [Recovered/Resolved]
  - Fatigue [Unknown]
  - Musculoskeletal pain [Unknown]
